FAERS Safety Report 7878451-2 (Version None)
Quarter: 2011Q4

REPORT INFORMATION
  Report Type: 
  Country: None (occurrence: None)
  Receive Date: 20111101
  Receipt Date: 20111025
  Transmission Date: 20120403
  Serious: Yes (Hospitalization)
  Sender: FDA-Public Use
  Company Number: FR-UCBSA-032962

PATIENT
  Age: 25 Year
  Sex: Male

DRUGS (3)
  1. TEGRETOL [Concomitant]
     Route: 048
  2. VIMPAT [Suspect]
     Dosage: VOLUNTARY DRUG INTOXICATION, MORE THAN FIVE TABLETS
  3. VIMPAT [Suspect]
     Route: 048

REACTIONS (5)
  - SUICIDE ATTEMPT [None]
  - STATUS EPILEPTICUS [None]
  - BALANCE DISORDER [None]
  - VERTIGO [None]
  - NAUSEA [None]
